FAERS Safety Report 5481514-2 (Version None)
Quarter: 2007Q4

REPORT INFORMATION
  Report Type: 
  Country: None (occurrence: None)
  Receive Date: 20071010
  Receipt Date: 20071002
  Transmission Date: 20080405
  Serious: Yes (Other)
  Sender: FDA-Public Use
  Company Number: AU-ROCHE-522672

PATIENT
  Age: 47 Year
  Sex: Male

DRUGS (4)
  1. CEFTRIAXONE SODIUM [Suspect]
     Dosage: ONE DOSE UNSPECIFIED.
     Route: 042
     Dates: start: 20070524, end: 20070524
  2. ENOXAPARIN SODIUM [Concomitant]
     Route: 058
     Dates: start: 20070524
  3. PARACETAMOL [Concomitant]
  4. SALBUTAMOL [Concomitant]
     Route: 055
     Dates: start: 20070524

REACTIONS (1)
  - ANGIOEDEMA [None]
